FAERS Safety Report 8181678-6 (Version None)
Quarter: 2012Q1

REPORT INFORMATION
  Report Type: 
  Country: None (occurrence: None)
  Receive Date: 20120302
  Receipt Date: 20110804
  Transmission Date: 20120608
  Serious: No
  Sender: FDA-Public Use
  Company Number: US-AMGEN-USASP2011034524

PATIENT
  Age: 68 Year
  Sex: Female
  Weight: 60.771 kg

DRUGS (8)
  1. NPLATE [Suspect]
     Indication: IDIOPATHIC THROMBOCYTOPENIC PURPURA
     Dosage: 61 MUG, QWK
     Dates: start: 20110623
  2. CALCIUM +D                         /00188401/ [Concomitant]
     Dosage: 600 MG, BID
     Route: 048
  3. ATARAX [Concomitant]
     Dosage: 25 MG, PER CHEMO REGIM
     Route: 048
  4. SPIRONOLACTONE [Concomitant]
  5. JANUVIA [Concomitant]
  6. ZYRTEC [Concomitant]
  7. PRAVASTATIN [Concomitant]
  8. VITAMIN D                          /00318501/ [Concomitant]
     Dosage: 1000 UNIT, UNK

REACTIONS (2)
  - URTICARIA [None]
  - RASH PRURITIC [None]
